FAERS Safety Report 9709686 (Version 1)
Quarter: 2013Q4

REPORT INFORMATION
  Report Type: Spontaneous
  Country: US (occurrence: US)
  Receive Date: 20131126
  Receipt Date: 20131126
  Transmission Date: 20140711
  Serious: Yes (Death)
  Sender: FDA-Public Use
  Company Number: PHEH2013US024631

PATIENT
  Age: 72 Year
  Sex: Male

DRUGS (11)
  1. GLEEVEC [Suspect]
     Dosage: 400 MG, UNK
  2. FISH OIL [Concomitant]
     Dosage: UNK UKN, UNK
  3. NITROGLYCERIN [Concomitant]
     Dosage: UNK UKN, UNK
  4. PRILOSEC [Concomitant]
     Dosage: UNK UKN, UNK
  5. SAW PALMETTO [Concomitant]
     Dosage: UNK UKN, UNK
  6. VITAMIN C [Concomitant]
     Dosage: UNK UKN, UNK
  7. ZOFRAN [Concomitant]
     Dosage: UNK UKN, UNK
  8. ATROVENT [Concomitant]
     Dosage: UNK UKN, UNK
  9. MIRALAX [Concomitant]
     Dosage: UNK UKN, UNK
  10. ATIVAN [Concomitant]
     Dosage: UNK UKN, UNK
  11. ATROPINE [Concomitant]
     Dosage: UNK UKN, UNK

REACTIONS (1)
  - Death [Fatal]
